FAERS Safety Report 25867418 (Version 1)
Quarter: 2025Q4

REPORT INFORMATION
  Report Type: Spontaneous
  Country: RS (occurrence: RS)
  Receive Date: 20251001
  Receipt Date: 20251001
  Transmission Date: 20260118
  Serious: Yes (Other)
  Sender: AMGEN
  Company Number: RS-AMGEN-SRBSP2025192625

PATIENT
  Age: 63 Year

DRUGS (5)
  1. VECTIBIX [Suspect]
     Active Substance: PANITUMUMAB
     Indication: Gastrointestinal adenocarcinoma
     Dosage: UNK
     Route: 065
     Dates: start: 2024
  2. LEUCOVORIN [Suspect]
     Active Substance: LEUCOVORIN\LEUCOVORIN CALCIUM
     Indication: Gastrointestinal adenocarcinoma
     Dosage: UNK
     Route: 065
     Dates: start: 2024
  3. FLUOROURACIL [Suspect]
     Active Substance: FLUOROURACIL
     Indication: Gastrointestinal adenocarcinoma
     Dosage: UNK
     Route: 065
     Dates: start: 2024
  4. OXALIPLATIN [Suspect]
     Active Substance: OXALIPLATIN
     Indication: Gastrointestinal adenocarcinoma
     Dosage: UNK
     Route: 065
     Dates: start: 2024
  5. IRINOTECAN [Suspect]
     Active Substance: IRINOTECAN
     Indication: Gastrointestinal adenocarcinoma
     Dosage: UNK
     Route: 065

REACTIONS (2)
  - Metastases to lung [Recovering/Resolving]
  - Metastases to liver [Recovering/Resolving]
